FAERS Safety Report 6945934-9 (Version None)
Quarter: 2010Q3

REPORT INFORMATION
  Report Type: 
  Country: None (occurrence: None)
  Receive Date: 20100827
  Receipt Date: 20100823
  Transmission Date: 20110219
  Serious: Yes (Other)
  Sender: FDA-Public Use
  Company Number: US-PURDUE-USA-2010-0045956

PATIENT
  Sex: Female

DRUGS (1)
  1. OXYCONTIN [Suspect]
     Indication: PRODUCT USED FOR UNKNOWN INDICATION
     Dosage: 80 MG, TID

REACTIONS (18)
  - ABDOMINAL PAIN UPPER [None]
  - ASTHMA [None]
  - DIZZINESS [None]
  - DRUG EFFECT DECREASED [None]
  - DYSPNOEA [None]
  - EYE DISORDER [None]
  - INADEQUATE ANALGESIA [None]
  - LIP SWELLING [None]
  - NAUSEA [None]
  - ORAL PAIN [None]
  - PALPITATIONS [None]
  - PHOTOPSIA [None]
  - STOMATITIS [None]
  - TINNITUS [None]
  - UNEVALUABLE EVENT [None]
  - VISION BLURRED [None]
  - VISUAL IMPAIRMENT [None]
  - WHEEZING [None]
